FAERS Safety Report 21047232 (Version 1)
Quarter: 2022Q3

REPORT INFORMATION
  Report Type: Spontaneous
  Country: US (occurrence: None)
  Receive Date: 20220705
  Receipt Date: 20220705
  Transmission Date: 20221027
  Serious: Yes (Other)
  Sender: FDA-Public Use
  Company Number: None

PATIENT
  Age: 63 Year
  Sex: Male
  Weight: 74.25 kg

DRUGS (23)
  1. GAMMAGARD [Suspect]
     Active Substance: HUMAN IMMUNOGLOBULIN G
     Indication: Combined immunodeficiency
     Dates: start: 20220522
  2. GAMMAGARD [Suspect]
     Active Substance: HUMAN IMMUNOGLOBULIN G
     Indication: Hypogammaglobulinaemia
  3. Azelastine 137mcg/spray 2 spr/nostril [Concomitant]
  4. Baclofen 10mg PO Qday [Concomitant]
  5. Calcium+D3 600-200 mg-unit PO BID [Concomitant]
  6. Claritin 10mg PO Qday [Concomitant]
  7. Diclofenac 50mg PO BID [Concomitant]
  8. Doxazosin 8mg PO Qday [Concomitant]
  9. Fludrocortisone 0.1mg  2 tabs PO Qday [Concomitant]
  10. Folic acid 1mg PO Qday [Concomitant]
  11. Ipratropium bromide 0.03% nasal [Concomitant]
  12. Klonopin 1mg PO BID [Concomitant]
  13. Lamictal 150mg PO Qday [Concomitant]
  14. Lexapro 10mg PO Qday [Concomitant]
  15. Meloxicam 7.5mg PO Qday [Concomitant]
  16. Montelukast 10mg PO Qday [Concomitant]
  17. Multivitamin PO Qday [Concomitant]
  18. Pantoprazole 40mg PO Qday [Concomitant]
  19. Potassium chloride ER 20mEq PO Qday [Concomitant]
  20. Prednisone 5 mg 2 tabs PO Qday [Concomitant]
  21. Rapaflo 8mg PO Qday [Concomitant]
  22. Remeron 45mg POO Qday [Concomitant]
  23. Singulair 10mg PO Qday [Concomitant]

REACTIONS (2)
  - Deep vein thrombosis [None]
  - Peripheral swelling [None]

NARRATIVE: CASE EVENT DATE: 20220613
